FAERS Safety Report 18700894 (Version 1)
Quarter: 2021Q1

REPORT INFORMATION
  Report Type: Spontaneous
  Country: NL (occurrence: NL)
  Receive Date: 20210105
  Receipt Date: 20210105
  Transmission Date: 20210419
  Serious: Yes (Other)
  Sender: FDA-Public Use
  Company Number: NVSC2020NL346562

PATIENT
  Sex: Female
  Weight: 60 kg

DRUGS (5)
  1. ALLOPURINOL. [Suspect]
     Active Substance: ALLOPURINOL
     Indication: PRODUCT USED FOR UNKNOWN INDICATION
     Dosage: 100 MG, QD (1 DD 1)
     Route: 065
     Dates: start: 20041018
  2. CARVEDILOL. [Suspect]
     Active Substance: CARVEDILOL
     Indication: PRODUCT USED FOR UNKNOWN INDICATION
     Dosage: 12.5 MG, Q12H (2 DD 1)
     Route: 065
     Dates: start: 20030206
  3. FOSINOPRIL [Suspect]
     Active Substance: FOSINOPRIL
     Indication: PRODUCT USED FOR UNKNOWN INDICATION
     Dosage: 5 MG, QD (1 DD HALVE TABLET)
     Route: 065
     Dates: start: 20030206
  4. ZOPICLONE [Suspect]
     Active Substance: ZOPICLONE
     Indication: PRODUCT USED FOR UNKNOWN INDICATION
     Dosage: 7.5 MG, QD (1 DD 1)
     Route: 065
     Dates: start: 20101125
  5. AMLODIPINE [Suspect]
     Active Substance: AMLODIPINE BESYLATE
     Indication: PRODUCT USED FOR UNKNOWN INDICATION
     Dosage: 2.5 MG, QD (1DD HALVE TABLET)
     Route: 065
     Dates: start: 20160429

REACTIONS (3)
  - Salivary hypersecretion [Unknown]
  - Swollen tongue [Unknown]
  - Lip swelling [Unknown]
